FAERS Safety Report 19946286 (Version 1)
Quarter: 2021Q4

REPORT INFORMATION
  Report Type: Spontaneous
  Country: DE (occurrence: DE)
  Receive Date: 20211012
  Receipt Date: 20211012
  Transmission Date: 20220303
  Serious: Yes (Hospitalization)
  Sender: FDA-Public Use
  Company Number: DE-ADRED-06515-01

PATIENT
  Age: 86 Year
  Sex: Female
  Weight: 93 kg

DRUGS (11)
  1. TORSEMIDE [Suspect]
     Active Substance: TORSEMIDE
     Indication: Product used for unknown indication
     Dosage: 10 MILLIGRAM (10 MG, 3-0-0-0, TABLETTEN)
     Route: 048
  2. EDOXABAN TOSYLATE [Suspect]
     Active Substance: EDOXABAN TOSYLATE
     Indication: Product used for unknown indication
     Dosage: 30 MILLIGRAM, QD (30 MG, 0-1-0-0, TABLETTEN)
     Route: 048
  3. BISOPROLOL [Concomitant]
     Active Substance: BISOPROLOL
     Dosage: 25 MILLIGRAM, QD (2.5 MG, 1-0-0-0, TABLETTEN)
     Route: 048
  4. REPAGLINIDE [Concomitant]
     Active Substance: REPAGLINIDE
     Dosage: 1 MILLIGRAM (1 MG, 2-1-1-0, TABLETTEN)
     Route: 048
  5. ALLOPURINOL [Concomitant]
     Active Substance: ALLOPURINOL
     Dosage: 100 MG, 1-0-0-0, TABLETTEN
     Route: 048
  6. POTASSIUM CHLORIDE [Concomitant]
     Active Substance: POTASSIUM CHLORIDE
     Dosage: 600 MILLIGRAM (600 MG, 2-2-2-0, KAPSELN)
     Route: 048
  7. LEVOTHYROXINUM NATRICUM [Concomitant]
     Dosage: 100 MICROGRAM, QD (100 ?G, 1-0-0-0, TABLETTEN)
     Route: 048
  8. OMEPRAZOLE [Concomitant]
     Active Substance: OMEPRAZOLE
     Dosage: 20 MILLIGRAM, QD (20 MG, 1-0-0-0, KAPSELN)
     Route: 048
  9. CHOLECALCIFEROL [Concomitant]
     Active Substance: CHOLECALCIFEROL
     Dosage: 20000 INTERNATIONAL UNIT (20000 IE, KAPSELN)
     Route: 048
  10. LACTULOSE [Concomitant]
     Active Substance: LACTULOSE
     Dosage: 20 GRAM, QD (20 G, 1-0-0-0, SAFT)
     Route: 048
  11. SITAGLIPTIN [Concomitant]
     Active Substance: SITAGLIPTIN
     Dosage: 25 MILLIGRAM, QD (25 MG, 1-0-0-0, TABLETTEN)
     Route: 048

REACTIONS (4)
  - Dyspnoea [Unknown]
  - Tachypnoea [Unknown]
  - Product prescribing error [Unknown]
  - Product administration error [Unknown]

NARRATIVE: CASE EVENT DATE: 20200818
